FAERS Safety Report 21069376 (Version 1)
Quarter: 2022Q3

REPORT INFORMATION
  Report Type: Spontaneous
  Country: US (occurrence: US)
  Receive Date: 20220712
  Receipt Date: 20220712
  Transmission Date: 20221027
  Serious: No
  Sender: FDA-Public Use
  Company Number: US-ASTELLAS-2022US001268

PATIENT
  Age: 82 Year
  Sex: Male

DRUGS (1)
  1. MYRBETRIQ [Suspect]
     Active Substance: MIRABEGRON
     Indication: Product used for unknown indication
     Route: 065
     Dates: start: 202112

REACTIONS (12)
  - Disorientation [Unknown]
  - Memory impairment [Unknown]
  - Balance disorder [Unknown]
  - Dizziness [Unknown]
  - Decreased appetite [Unknown]
  - Essential tremor [Unknown]
  - Condition aggravated [Unknown]
  - Depression [Unknown]
  - Anxiety [Unknown]
  - Abnormal behaviour [Unknown]
  - Depersonalisation/derealisation disorder [Unknown]
  - Headache [Unknown]
